FAERS Safety Report 18205808 (Version 1)
Quarter: 2020Q3

REPORT INFORMATION
  Report Type: Spontaneous
  Country: US (occurrence: US)
  Receive Date: 20200827
  Receipt Date: 20200827
  Transmission Date: 20201103
  Serious: Yes (Death, Other)
  Sender: FDA-Public Use
  Company Number: US-PURDUE-USA-2020-0163086

PATIENT
  Sex: Male

DRUGS (33)
  1. OXYCODONE HYDROCHLORIDE (SIMILAR TO NDA 22?272) [Suspect]
     Active Substance: OXYCODONE HYDROCHLORIDE
     Indication: PRODUCT USED FOR UNKNOWN INDICATION
     Dosage: 200 MG, BID
     Route: 048
  2. METHADONE [Suspect]
     Active Substance: METHADONE HYDROCHLORIDE
     Dosage: 25 MG, DAILY
     Route: 065
     Dates: start: 20080228
  3. METHADONE [Suspect]
     Active Substance: METHADONE HYDROCHLORIDE
     Dosage: 10 MG, BID
     Route: 065
     Dates: start: 20080313
  4. METHADONE [Suspect]
     Active Substance: METHADONE HYDROCHLORIDE
     Dosage: 40 MG AM AND 30 PM
     Route: 065
     Dates: start: 20090910
  5. HYDROCODONE BITARTRATE (SIMILAR TO NDA 206627) [Suspect]
     Active Substance: HYDROCODONE BITARTRATE
     Indication: PRODUCT USED FOR UNKNOWN INDICATION
     Dosage: UNKNOWN
     Route: 048
  6. DILAUDID [Suspect]
     Active Substance: HYDROMORPHONE HYDROCHLORIDE
     Indication: PRODUCT USED FOR UNKNOWN INDICATION
     Dosage: UNKNOWN
     Route: 048
  7. METHADONE [Suspect]
     Active Substance: METHADONE HYDROCHLORIDE
     Dosage: 40 MG, BID
     Route: 065
  8. METHADONE [Suspect]
     Active Substance: METHADONE HYDROCHLORIDE
     Dosage: 15 MG, DAILY
     Route: 065
     Dates: start: 20080410
  9. XANAX [Concomitant]
     Active Substance: ALPRAZOLAM
     Dosage: 1 MG, HS
     Route: 065
     Dates: start: 20081128
  10. EFFEXOR [Concomitant]
     Active Substance: VENLAFAXINE HYDROCHLORIDE
     Dosage: 150 MG, UNK
     Route: 065
  11. LUNESTA [Concomitant]
     Active Substance: ESZOPICLONE
     Indication: INSOMNIA
     Dosage: 3 MG, HS
     Route: 048
  12. METHADONE [Suspect]
     Active Substance: METHADONE HYDROCHLORIDE
     Dosage: 20 MG, DAILY
     Route: 065
     Dates: start: 20080519
  13. CANNABIS [Suspect]
     Active Substance: CANNABIS SATIVA SUBSP. INDICA TOP
     Indication: PRODUCT USED FOR UNKNOWN INDICATION
     Dosage: UNKNOWN
     Route: 065
  14. XANAX [Concomitant]
     Active Substance: ALPRAZOLAM
     Dosage: 1.5 MG, UNK
     Route: 065
  15. METHADONE [Suspect]
     Active Substance: METHADONE HYDROCHLORIDE
     Dosage: 30 MG AM AND 25 MG PM, DAILY
     Route: 065
  16. METHADONE [Suspect]
     Active Substance: METHADONE HYDROCHLORIDE
     Dosage: 10 MG, TID
     Route: 065
     Dates: start: 20080829
  17. XANAX [Concomitant]
     Active Substance: ALPRAZOLAM
     Indication: PRODUCT USED FOR UNKNOWN INDICATION
     Dosage: UNKNOWN
     Route: 065
  18. OXAZEPAM. [Concomitant]
     Active Substance: OXAZEPAM
     Indication: PRODUCT USED FOR UNKNOWN INDICATION
     Dosage: UNKNOWN
     Route: 065
  19. METHADONE [Suspect]
     Active Substance: METHADONE HYDROCHLORIDE
     Dosage: 20MG/20MG, DAILY
     Route: 065
     Dates: start: 20071108
  20. METHADONE [Suspect]
     Active Substance: METHADONE HYDROCHLORIDE
     Dosage: 40 MG, DAILY
     Route: 065
     Dates: start: 20071119
  21. METHADONE [Suspect]
     Active Substance: METHADONE HYDROCHLORIDE
     Dosage: 20 MG, BID
     Route: 065
     Dates: start: 20090119
  22. SEROQUEL [Concomitant]
     Active Substance: QUETIAPINE FUMARATE
     Indication: PRODUCT USED FOR UNKNOWN INDICATION
     Dosage: UNKNOWN
     Route: 065
  23. EFFEXOR [Concomitant]
     Active Substance: VENLAFAXINE HYDROCHLORIDE
     Dosage: 225 MG, UNK
     Route: 065
     Dates: start: 20071022
  24. METHADONE [Suspect]
     Active Substance: METHADONE HYDROCHLORIDE
     Dosage: 20 MG, BID
     Route: 065
     Dates: start: 20070917
  25. METHADONE [Suspect]
     Active Substance: METHADONE HYDROCHLORIDE
     Dosage: 30 MG AM AND 20 MG PM, DAILY
     Route: 065
     Dates: start: 20071004
  26. XANAX [Concomitant]
     Active Substance: ALPRAZOLAM
     Dosage: 0.5 MG, HS
     Route: 065
     Dates: start: 20081020
  27. METHADONE [Suspect]
     Active Substance: METHADONE HYDROCHLORIDE
     Indication: DRUG DEPENDENCE
     Dosage: 30 MG, BID
     Route: 065
  28. METHADONE [Suspect]
     Active Substance: METHADONE HYDROCHLORIDE
     Dosage: 30 MG, DAILY
     Route: 065
     Dates: start: 20080128
  29. METHADONE [Suspect]
     Active Substance: METHADONE HYDROCHLORIDE
     Dosage: 20 MG, DAILY
     Route: 065
     Dates: start: 20080403
  30. METHADONE [Suspect]
     Active Substance: METHADONE HYDROCHLORIDE
     Dosage: 35 MG, DAILY
     Route: 065
     Dates: start: 20090417
  31. TRAMADOL. [Suspect]
     Active Substance: TRAMADOL
     Indication: DRUG DEPENDENCE
     Dosage: 50 MG, Q6H PRN
     Route: 048
  32. METHADONE [Suspect]
     Active Substance: METHADONE HYDROCHLORIDE
     Dosage: 20 MG/25 MG, DAILY
     Route: 065
     Dates: start: 20071026
  33. EFFEXOR [Concomitant]
     Active Substance: VENLAFAXINE HYDROCHLORIDE
     Indication: PRODUCT USED FOR UNKNOWN INDICATION
     Dosage: 75 MG, UNK
     Route: 065

REACTIONS (48)
  - Impaired gastric emptying [Unknown]
  - Hyperactive pharyngeal reflex [Unknown]
  - Epistaxis [Unknown]
  - Agitation [Unknown]
  - Hypoaesthesia [Unknown]
  - Asthenia [Unknown]
  - Vertigo [Unknown]
  - Lumbar radiculopathy [Unknown]
  - Chills [Unknown]
  - Insomnia [Unknown]
  - Nephrolithiasis [Unknown]
  - Sinusitis [Unknown]
  - Epigastric discomfort [Unknown]
  - Muscle spasms [Unknown]
  - Pain in extremity [Unknown]
  - Dizziness [Unknown]
  - Constipation [Unknown]
  - Drug abuse [Unknown]
  - Gastrooesophageal reflux disease [Unknown]
  - Dyspepsia [Unknown]
  - Gastritis [Unknown]
  - Mood swings [Unknown]
  - Haematuria [Unknown]
  - Blood glucose increased [Unknown]
  - Depression [Unknown]
  - Drug withdrawal syndrome [Unknown]
  - Seizure [Unknown]
  - Peptic ulcer [Unknown]
  - Gas gangrene [Unknown]
  - Back pain [Unknown]
  - Aspartate aminotransferase decreased [Unknown]
  - Malaise [Unknown]
  - Tremor [Unknown]
  - Drug dependence [Unknown]
  - Weight decreased [Unknown]
  - Anxiety [Unknown]
  - Myofascitis [Unknown]
  - Alanine aminotransferase decreased [Unknown]
  - Accidental overdose [Fatal]
  - Loss of consciousness [Unknown]
  - Middle ear effusion [Unknown]
  - Balance disorder [Unknown]
  - Myalgia [Unknown]
  - Urinary incontinence [Unknown]
  - Amnesia [Unknown]
  - Anger [Unknown]
  - Vomiting [Unknown]
  - Nausea [Unknown]

NARRATIVE: CASE EVENT DATE: 20090108
